FAERS Safety Report 21044587 (Version 2)
Quarter: 2022Q3

REPORT INFORMATION
  Report Type: Spontaneous
  Country: US (occurrence: US)
  Receive Date: 20220705
  Receipt Date: 20220808
  Transmission Date: 20221026
  Serious: No
  Sender: FDA-Public Use
  Company Number: US-Covis Pharma GmbH-2022COV01881

PATIENT
  Age: 27 Year
  Sex: Female

DRUGS (2)
  1. MAKENA [Suspect]
     Active Substance: HYDROXYPROGESTERONE CAPROATE
     Indication: Premature delivery
     Route: 058
     Dates: start: 20220527
  2. VITAMINS [Concomitant]
     Active Substance: VITAMINS
     Indication: Product used for unknown indication
     Dates: start: 20220122

REACTIONS (2)
  - Injury associated with device [Unknown]
  - Product dose omission issue [Unknown]

NARRATIVE: CASE EVENT DATE: 20220602
